FAERS Safety Report 11244396 (Version 1)
Quarter: 2015Q3

REPORT INFORMATION
  Report Type: Spontaneous
  Country: US (occurrence: None)
  Receive Date: 20150706
  Receipt Date: 20150706
  Transmission Date: 20151125
  Serious: No
  Sender: FDA-Public Use
  Company Number: None

PATIENT
  Age: 34 Year
  Sex: Female
  Weight: 56.7 kg

DRUGS (2)
  1. SUBOXONE [Suspect]
     Active Substance: BUPRENORPHINE HYDROCHLORIDE\NALOXONE HYDROCHLORIDE
     Indication: DRUG DEPENDENCE
     Dosage: 1 FILM
     Route: 060
     Dates: start: 20131010, end: 20141015
  2. ADDERALL 20MG [Concomitant]
     Indication: DRUG DEPENDENCE
     Dosage: 1 FILM, TID, SUBLINGUAL
     Route: 060
     Dates: start: 20131010, end: 20141015

REACTIONS (2)
  - Oedema peripheral [None]
  - No therapeutic response [None]

NARRATIVE: CASE EVENT DATE: 20140710
